FAERS Safety Report 9039238 (Version 1)
Quarter: 2013Q1

REPORT INFORMATION
  Report Type: Report from Study
  Country: US (occurrence: US)
  Receive Date: 20130129
  Receipt Date: 20130129
  Transmission Date: 20140127
  Serious: No
  Sender: FDA-Public Use
  Company Number: US-ABBOTT-12P-163-0933413-00

PATIENT
  Age: 35 Year
  Sex: Female

DRUGS (9)
  1. HUMIRA 40 MG/0.8 ML PEN [Suspect]
     Indication: CROHN^S DISEASE
  2. NASONEX [Concomitant]
     Indication: PRODUCT USED FOR UNKNOWN INDICATION
     Dosage: EVERY DAY
     Route: 045
  3. ZYRTEC [Concomitant]
     Indication: HYPERSENSITIVITY
  4. NEXIUM [Concomitant]
     Indication: PRODUCT USED FOR UNKNOWN INDICATION
  5. PENTASA [Concomitant]
     Indication: PRODUCT USED FOR UNKNOWN INDICATION
  6. TYLENOL [Concomitant]
     Indication: PRODUCT USED FOR UNKNOWN INDICATION
  7. FLOVENT [Concomitant]
     Indication: LUNG DISORDER
     Route: 055
  8. ALBUTEROL [Concomitant]
     Indication: LUNG DISORDER
     Route: 055
  9. BREATHING MACHINE [Concomitant]
     Indication: LUNG DISORDER

REACTIONS (6)
  - Nausea [Not Recovered/Not Resolved]
  - Abdominal pain [Unknown]
  - Pyrexia [Unknown]
  - Device malfunction [Unknown]
  - Device malfunction [Unknown]
  - Drug dose omission [Unknown]
